FAERS Safety Report 17619143 (Version 3)
Quarter: 2020Q2

REPORT INFORMATION
  Report Type: Spontaneous
  Country: DE (occurrence: DE)
  Receive Date: 20200402
  Receipt Date: 20200423
  Transmission Date: 20200713
  Serious: Yes (Life-Threatening, Hospitalization, Other)
  Sender: FDA-Public Use
  Company Number: DE-BRISTOL-MYERS SQUIBB COMPANY-BMS-2020-027061

PATIENT
  Sex: Female

DRUGS (2)
  1. LITALIR [Suspect]
     Active Substance: HYDROXYUREA
     Indication: LEUKAEMIA
     Dosage: UNK, UNAVAILABLE
  2. LITALIR [Suspect]
     Active Substance: HYDROXYUREA
     Indication: PRODUCT USED FOR UNKNOWN INDICATION
     Dosage: 2000 MILLIGRAM PER DAY

REACTIONS (1)
  - Coronavirus infection [Unknown]
